FAERS Safety Report 7353887-7 (Version None)
Quarter: 2011Q1

REPORT INFORMATION
  Report Type: 
  Country: None (occurrence: None)
  Receive Date: 20110315
  Receipt Date: 20110207
  Transmission Date: 20110831
  Serious: No
  Sender: FDA-Public Use
  Company Number: US-BAYER-2011-014558

PATIENT
  Age: 41 Year
  Sex: Female

DRUGS (1)
  1. ALEVE-D SINUS + COLD [Suspect]
     Indication: NASAL CONGESTION
     Dosage: 1 DF, QD, BOTTLE COUNT 20S
     Route: 048
     Dates: start: 20110202, end: 20110206

REACTIONS (1)
  - NASAL CONGESTION [None]
